FAERS Safety Report 10409616 (Version 1)
Quarter: 2014Q3

REPORT INFORMATION
  Report Type: Spontaneous
  Country: US (occurrence: None)
  Receive Date: 20140825
  Receipt Date: 20140825
  Transmission Date: 20150326
  Serious: No
  Sender: FDA-Public Use
  Company Number: None

PATIENT
  Sex: Male

DRUGS (14)
  1. SILDENAFIL [Concomitant]
     Active Substance: SILDENAFIL
  2. BACLOFEN. [Concomitant]
     Active Substance: BACLOFEN
  3. AMPYRA [Suspect]
     Active Substance: DALFAMPRIDINE
     Indication: RELAPSING-REMITTING MULTIPLE SCLEROSIS
     Route: 048
     Dates: start: 20130612
  4. TECFIDERA [Concomitant]
     Active Substance: DIMETHYL FUMARATE
  5. METHYLPREDNISOLONE [Concomitant]
     Active Substance: METHYLPREDNISOLONE
  6. BECLOMETHASONE DIPROPIONATE [Concomitant]
     Active Substance: BECLOMETHASONE DIPROPIONATE
  7. PREDNISONE. [Concomitant]
     Active Substance: PREDNISONE
  8. DIAZEPAM. [Concomitant]
     Active Substance: DIAZEPAM
  9. LORAZEPAM. [Concomitant]
     Active Substance: LORAZEPAM
  10. MECLIZINE [Concomitant]
     Active Substance: MECLIZINE\MECLIZINE HYDROCHLORIDE
  11. CHOLECALCIFEROL [Concomitant]
     Active Substance: CHOLECALCIFEROL
  12. IBUPROFEN. [Concomitant]
     Active Substance: IBUPROFEN
  13. GABAPENTIN. [Concomitant]
     Active Substance: GABAPENTIN
  14. ALBUTEROL. [Concomitant]
     Active Substance: ALBUTEROL

REACTIONS (1)
  - Insomnia [None]
